FAERS Safety Report 9756723 (Version 1)
Quarter: 2013Q4

REPORT INFORMATION
  Report Type: Spontaneous
  Country: JP (occurrence: JP)
  Receive Date: 20131213
  Receipt Date: 20131213
  Transmission Date: 20140711
  Serious: Yes (Death)
  Sender: FDA-Public Use
  Company Number: JP-MALLINCKRODT-T201305090

PATIENT
  Age: 35 Year
  Sex: Male
  Weight: 54.7 kg

DRUGS (4)
  1. METHADONE [Suspect]
     Indication: CANCER PAIN
     Dosage: 10 MG, (30 MG DAILY DOSE)
     Route: 048
     Dates: start: 20130919, end: 20130925
  2. METHADONE [Suspect]
     Dosage: 15 MG, (45 MG DAILY DOSE)
     Route: 048
     Dates: start: 20130926
  3. OXINORM                            /00045603/ [Concomitant]
     Dosage: 25 MG, PRN
     Route: 048
     Dates: start: 20130918
  4. NAUZELIN [Concomitant]
     Dosage: 30 MG, UNK
     Route: 048

REACTIONS (1)
  - Rectal cancer [Fatal]
